FAERS Safety Report 9258129 (Version 1)
Quarter: 2013Q1

REPORT INFORMATION
  Report Type: Spontaneous
  Country: US (occurrence: None)
  Receive Date: 20121212
  Receipt Date: 20121212
  Transmission Date: 20140127
  Serious: No
  Sender: FDA-Public Use
  Company Number: 1209USA003060

PATIENT
  Age: 58 Year
  Sex: Female

DRUGS (15)
  1. VICTRELIS [Suspect]
  2. PEGINTRON [Suspect]
  3. REBETOL (RIBAVIRIN) [Suspect]
  4. CATAPRES (CLONIDINE HYDROCHLORIDE) [Concomitant]
  5. BYSTOLIC (NEBIVOLOL HYDROCHLORIDE) [Concomitant]
  6. REBETOL (RIBAVIRIN) [Suspect]
  7. CATAPRES [Concomitant]
  8. BYSTOLIC [Concomitant]
  9. MONOPRIL [Concomitant]
  10. SYNTHROID [Concomitant]
  11. GLUCOPHAGE [Concomitant]
  12. VITAMIN D [Concomitant]
  13. CYANOCOBALAMIN [Concomitant]
  14. PRAVASTATIN SODIUM [Concomitant]
  15. HEMAX [Concomitant]

REACTIONS (6)
  - Crying [None]
  - Dissociation [None]
  - Hepatic pain [None]
  - Nausea [None]
  - Depressive symptom [None]
  - Depressed mood [None]
